FAERS Safety Report 7443584-1 (Version None)
Quarter: 2011Q2

REPORT INFORMATION
  Report Type: 
  Country: None (occurrence: None)
  Receive Date: 20110428
  Receipt Date: 20110418
  Transmission Date: 20111010
  Serious: No
  Sender: FDA-Public Use
  Company Number: US-B.I. PHARMACEUTICALS,INC./RIDGEFIELD-2011-BP-11355BP

PATIENT
  Age: 68 Year
  Sex: Male

DRUGS (2)
  1. ZANTAC 75 [Suspect]
     Indication: DYSPEPSIA
     Dosage: 75 MG
     Route: 048
     Dates: start: 20110401, end: 20110406
  2. ACETAMINOPHEN [Concomitant]
     Indication: PAIN
     Dates: start: 19900101

REACTIONS (2)
  - HYPERCHLORHYDRIA [None]
  - FLATULENCE [None]
